FAERS Safety Report 15160484 (Version 2)
Quarter: 2018Q3

REPORT INFORMATION
  Report Type: Spontaneous
  Country: US (occurrence: US)
  Receive Date: 20180718
  Receipt Date: 20180726
  Transmission Date: 20181010
  Serious: No
  Sender: FDA-Public Use
  Company Number: US-ACTELION-A-NJ2018-175401

PATIENT
  Age: 78 Year
  Sex: Female

DRUGS (3)
  1. OXYGEN. [Concomitant]
     Active Substance: OXYGEN
     Dosage: 4 L, UNK
  2. OPSUMIT [Suspect]
     Active Substance: MACITENTAN
     Indication: PULMONARY ARTERIAL HYPERTENSION
     Dosage: 10 MG, QD
     Route: 048
     Dates: start: 20180611
  3. OXYGEN. [Concomitant]
     Active Substance: OXYGEN
     Dosage: 6 L, UNK

REACTIONS (8)
  - Bronchitis [Unknown]
  - Unevaluable event [Unknown]
  - Nasopharyngitis [Unknown]
  - Haemorrhoids [Unknown]
  - Blood pressure decreased [Unknown]
  - International normalised ratio decreased [Unknown]
  - Dyspnoea [Unknown]
  - Blood potassium abnormal [Unknown]

NARRATIVE: CASE EVENT DATE: 20180611
